FAERS Safety Report 7112673-3 (Version None)
Quarter: 2010Q4

REPORT INFORMATION
  Report Type: 
  Country: None (occurrence: None)
  Receive Date: 20101119
  Receipt Date: 20101108
  Transmission Date: 20110411
  Serious: Yes (Other)
  Sender: FDA-Public Use
  Company Number: PHHY2010US45898

PATIENT
  Sex: Female
  Weight: 114.74 kg

DRUGS (10)
  1. RECLAST [Suspect]
     Indication: OSTEOPOROSIS
     Dosage: 5 MG/ YEAR
     Route: 042
     Dates: start: 20100310
  2. ATENOLOL [Concomitant]
     Indication: HYPERTENSION
     Dosage: 25 MG, ONCE A DAY
     Route: 048
  3. ATENOLOL [Concomitant]
     Indication: HEART RATE IRREGULAR
  4. ASPIRIN [Concomitant]
     Dosage: DAILY
     Route: 048
  5. ALEVE (CAPLET) [Concomitant]
     Indication: ARTHRITIS
     Dosage: TWICE  A DAY
  6. ANTIHYPERTENSIVE DRUGS [Concomitant]
  7. ASPIRIN [Concomitant]
  8. FISH PILL [Concomitant]
  9. VITAMIN D [Concomitant]
  10. CALCIUM [Concomitant]

REACTIONS (17)
  - ABDOMINAL DISCOMFORT [None]
  - AGEUSIA [None]
  - ALOPECIA [None]
  - ASTHENIA [None]
  - BACK PAIN [None]
  - DEPRESSION [None]
  - DIZZINESS [None]
  - EYE PAIN [None]
  - FATIGUE [None]
  - FEELING ABNORMAL [None]
  - GAIT DISTURBANCE [None]
  - HYPERCHLORHYDRIA [None]
  - MIGRAINE [None]
  - NAUSEA [None]
  - NERVOUSNESS [None]
  - OEDEMA PERIPHERAL [None]
  - PAIN [None]
